FAERS Safety Report 14544992 (Version 1)
Quarter: 2018Q1

REPORT INFORMATION
  Report Type: Spontaneous
  Country: US (occurrence: US)
  Receive Date: 20180216
  Receipt Date: 20180216
  Transmission Date: 20180509
  Serious: No
  Sender: FDA-Public Use
  Company Number: None

PATIENT
  Age: 34 Year
  Sex: Female
  Weight: 62.1 kg

DRUGS (5)
  1. FLONASE [Concomitant]
     Active Substance: FLUTICASONE PROPIONATE
  2. NITROFURANTOIN. [Suspect]
     Active Substance: NITROFURANTOIN
     Indication: URINARY TRACT INFECTION
     Dosage: ?          QUANTITY:1 CAPSULE(S);?
     Route: 048
     Dates: start: 20180206, end: 20180210
  3. ACYCLOVIR. [Concomitant]
     Active Substance: ACYCLOVIR
  4. IBUPROFEN. [Concomitant]
     Active Substance: IBUPROFEN
  5. SUDAFED [Concomitant]
     Active Substance: PSEUDOEPHEDRINE HYDROCHLORIDE

REACTIONS (16)
  - Nausea [None]
  - Pain [None]
  - Headache [None]
  - Pyrexia [None]
  - Chills [None]
  - Asthenia [None]
  - Head discomfort [None]
  - Influenza like illness [None]
  - Anxiety [None]
  - Hypersomnia [None]
  - Diarrhoea [None]
  - Oropharyngeal pain [None]
  - Feeling abnormal [None]
  - Impaired work ability [None]
  - Eating disorder [None]
  - Abdominal pain upper [None]

NARRATIVE: CASE EVENT DATE: 20180210
